FAERS Safety Report 7461682-3 (Version None)
Quarter: 2011Q2

REPORT INFORMATION
  Report Type: 
  Country: None (occurrence: None)
  Receive Date: 20110506
  Receipt Date: 20110427
  Transmission Date: 20111010
  Serious: Yes (Death, Other)
  Sender: FDA-Public Use
  Company Number: TR-ASTELLAS-2011US002014

PATIENT
  Age: 13 Year
  Sex: Male

DRUGS (16)
  1. AMBISOME [Suspect]
     Indication: EVIDENCE BASED TREATMENT
     Dosage: 3 MG/KG, UID/QD
     Route: 042
  2. ANTITHYMOCYTE IMMUNOGLOBULIN [Suspect]
     Dosage: 2.5 MG/KG, UID/QD
     Route: 065
  3. PREDNISOLONE [Suspect]
     Indication: APLASTIC ANAEMIA
     Dosage: 2 MG/KG, UID/QD
     Route: 065
  4. PREDNISOLONE [Suspect]
     Dosage: UNK
     Route: 065
  5. AMBISOME [Suspect]
     Dosage: UNK
     Route: 042
  6. AMBISOME [Suspect]
     Dosage: UNK
     Route: 042
  7. ANTITHYMOCYTE IMMUNOGLOBULIN [Suspect]
     Indication: APLASTIC ANAEMIA
     Dosage: 2.5 MG/KG, UID/QD
     Route: 065
  8. GRANULOCYTE COLONY STIMULATING FACTOR [Suspect]
     Dosage: 5 UG/KG, UID/QD
     Route: 065
  9. AMBISOME [Suspect]
     Dosage: UNK
     Route: 042
  10. AMBISOME [Suspect]
     Dosage: UNK
     Route: 042
  11. AMBISOME [Suspect]
     Dosage: 30 MG, TOTAL DOSE
     Route: 042
  12. AMBISOME [Suspect]
     Dosage: 1 MG, TOTAL DOSE
     Route: 042
  13. GRANULOCYTE COLONY STIMULATING FACTOR [Suspect]
     Indication: APLASTIC ANAEMIA
     Dosage: 5 UG/KG, UID/QD
     Route: 065
  14. AMBISOME [Suspect]
     Dosage: 5 MG/KG, UID/QD
     Route: 042
  15. CYCLOSPORINE [Suspect]
     Indication: APLASTIC ANAEMIA
     Dosage: 5-10 MG/KG/DAY
     Route: 065
  16. AMBISOME [Suspect]
     Indication: ZYGOMYCOSIS
     Dosage: UNK
     Route: 042

REACTIONS (4)
  - DRUG INEFFECTIVE [None]
  - ZYGOMYCOSIS [None]
  - BRONCHOPULMONARY ASPERGILLOSIS [None]
  - ANAPHYLACTIC REACTION [None]
